FAERS Safety Report 13588862 (Version 1)
Quarter: 2017Q2

REPORT INFORMATION
  Report Type: Spontaneous
  Country: RU (occurrence: RU)
  Receive Date: 20170529
  Receipt Date: 20170529
  Transmission Date: 20170830
  Serious: Yes (Life-Threatening, Other)
  Sender: FDA-Public Use
  Company Number: RU-ROCHE-1936031

PATIENT
  Sex: Male
  Weight: 67 kg

DRUGS (3)
  1. XELODA [Suspect]
     Active Substance: CAPECITABINE
     Indication: PRODUCT USED FOR UNKNOWN INDICATION
     Dosage: 1ST - 14TH DAYS OF THERAPY
     Route: 065
  2. DOCETAXEL. [Suspect]
     Active Substance: DOCETAXEL
     Indication: PRODUCT USED FOR UNKNOWN INDICATION
     Dosage: FIRST DAY OF CHEMOTHERAPY
     Route: 065
  3. CISPLATINUM [Suspect]
     Active Substance: CISPLATIN
     Indication: PRODUCT USED FOR UNKNOWN INDICATION
     Dosage: FIRST DAY OF THERAPY
     Route: 065

REACTIONS (18)
  - Nausea [Unknown]
  - General physical health deterioration [Unknown]
  - Hypoaesthesia teeth [Unknown]
  - Gastrointestinal disorder [Unknown]
  - Body temperature decreased [Recovered/Resolved]
  - Body temperature increased [Unknown]
  - Renal pain [Unknown]
  - Leukopenia [Unknown]
  - Eructation [Unknown]
  - Dyspepsia [Unknown]
  - Disorientation [Unknown]
  - Pneumonia [Unknown]
  - Abdominal pain [Unknown]
  - Candida infection [Unknown]
  - Vomiting [Unknown]
  - Decreased appetite [Unknown]
  - Hyperuricaemia [Unknown]
  - Mouth ulceration [Unknown]
